FAERS Safety Report 10922950 (Version 1)
Quarter: 2015Q1

REPORT INFORMATION
  Report Type: Spontaneous
  Country: JP (occurrence: JP)
  Receive Date: 20150317
  Receipt Date: 20150317
  Transmission Date: 20150721
  Serious: Yes (Other)
  Sender: FDA-Public Use
  Company Number: JP-PFIZER INC-2015093101

PATIENT
  Age: 70 Year
  Sex: Male

DRUGS (1)
  1. TORISEL [Suspect]
     Active Substance: TEMSIROLIMUS
     Indication: RENAL CELL CARCINOMA
     Dosage: UNK
     Route: 041
     Dates: start: 20131115, end: 20140106

REACTIONS (4)
  - Vena cava embolism [Unknown]
  - Asthenia [Unknown]
  - Renal cell carcinoma [Unknown]
  - Disease progression [Unknown]
